FAERS Safety Report 7536235-9 (Version None)
Quarter: 2011Q2

REPORT INFORMATION
  Report Type: 
  Country: None (occurrence: None)
  Receive Date: 20110608
  Receipt Date: 20110608
  Transmission Date: 20111010
  Serious: No
  Sender: FDA-Public Use
  Company Number: None

PATIENT
  Age: 24 Year
  Sex: Male
  Weight: 95.2554 kg

DRUGS (2)
  1. INVEGA [Suspect]
     Indication: SCHIZOPHRENIA, PARANOID TYPE
     Dosage: INVEGA PO FIRST BID -?- PO WITH ILL EFFECTS
     Route: 048
     Dates: start: 20110520, end: 20110522
  2. KLONOPIN [Suspect]
     Dosage: KLOPIN BID -?- PO 2-STEP LOADING IM DOSAGES
     Route: 048
     Dates: start: 20110523, end: 20110530

REACTIONS (7)
  - LETHARGY [None]
  - HYPERSOMNIA [None]
  - HYPOKINESIA [None]
  - GENERAL PHYSICAL HEALTH DETERIORATION [None]
  - DRUG INTOLERANCE [None]
  - DYSARTHRIA [None]
  - OVERDOSE [None]
